FAERS Safety Report 12120830 (Version 1)
Quarter: 2016Q1

REPORT INFORMATION
  Report Type: Spontaneous
  Country: JP (occurrence: JP)
  Receive Date: 20160226
  Receipt Date: 20160226
  Transmission Date: 20160526
  Serious: Yes (Other)
  Sender: FDA-Public Use
  Company Number: JP-ALEXION PHARMACEUTICALS INC-A201601352

PATIENT
  Age: 34 Year
  Sex: Female

DRUGS (2)
  1. SOLIRIS [Suspect]
     Active Substance: ECULIZUMAB
     Indication: PAROXYSMAL NOCTURNAL HAEMOGLOBINURIA
     Dosage: 900 MG, Q2W
     Route: 042
  2. FOLIC ACID. [Concomitant]
     Active Substance: FOLIC ACID
     Indication: SUPPLEMENTATION THERAPY
     Route: 065

REACTIONS (9)
  - Fibrin D dimer increased [Unknown]
  - Exposure during breast feeding [Unknown]
  - Inappropriate schedule of drug administration [Not Recovered/Not Resolved]
  - Exposure during pregnancy [Recovered/Resolved]
  - Nasopharyngitis [Unknown]
  - Haemolysis [Unknown]
  - Haemoglobin decreased [Unknown]
  - Complement factor increased [Recovered/Resolved]
  - Blood lactate dehydrogenase increased [Recovered/Resolved]
